APPROVED DRUG PRODUCT: PASKALIUM
Active Ingredient: POTASSIUM AMINOSALICYLATE
Strength: 500MG
Dosage Form/Route: CAPSULE;ORAL
Application: N009395 | Product #004
Applicant: GLENWOOD INC
Approved: Approved Prior to Jan 1, 1982 | RLD: No | RS: No | Type: DISCN